FAERS Safety Report 7479140-9 (Version None)
Quarter: 2011Q2

REPORT INFORMATION
  Report Type: 
  Country: None (occurrence: None)
  Receive Date: 20110513
  Receipt Date: 20110510
  Transmission Date: 20111010
  Serious: Yes (Death, Disabling)
  Sender: FDA-Public Use
  Company Number: JP-BRISTOL-MYERS SQUIBB COMPANY-15651169

PATIENT
  Age: 61 Year
  Sex: Female

DRUGS (2)
  1. METHOTREXATE [Concomitant]
  2. ORENCIA [Suspect]
     Indication: RHEUMATOID ARTHRITIS
     Dosage: LAST DOSE ON 12MAR2011
     Route: 041
     Dates: start: 20101114

REACTIONS (1)
  - ALTERED STATE OF CONSCIOUSNESS [None]
